FAERS Safety Report 25998076 (Version 4)
Quarter: 2025Q4

REPORT INFORMATION
  Report Type: Spontaneous
  Country: EU (occurrence: EU)
  Receive Date: 20251105
  Receipt Date: 20251224
  Transmission Date: 20260117
  Serious: Yes (Other)
  Sender: AUROBINDO
  Company Number: EU-002147023-NVSC2025DE141650

PATIENT
  Sex: Female

DRUGS (3)
  1. LETROZOLE [Suspect]
     Active Substance: LETROZOLE
     Indication: Breast cancer
     Dosage: 2.5 MILLIGRAM, ONCE A DAY
     Route: 061
     Dates: start: 20250808
  2. KISQALI [Suspect]
     Active Substance: RIBOCICLIB SUCCINATE
     Indication: Breast cancer
     Dosage: 400 MG (21D/7D: 400 MG)
     Route: 061
  3. KISQALI [Suspect]
     Active Substance: RIBOCICLIB SUCCINATE
     Dosage: 400 MILLIGRAM
     Route: 061

REACTIONS (10)
  - Glomerular filtration rate increased [Recovered/Resolved]
  - Alopecia [Not Recovered/Not Resolved]
  - Sleep disorder [Not Recovered/Not Resolved]
  - Fatigue [Not Recovered/Not Resolved]
  - Alanine aminotransferase increased [Recovering/Resolving]
  - Aspartate aminotransferase increased [Recovered/Resolved]
  - Papule [Recovered/Resolved]
  - Cough [Recovered/Resolved]
  - Glomerular filtration rate decreased [Recovered/Resolved]
  - Hordeolum [Recovered/Resolved]

NARRATIVE: CASE EVENT DATE: 20250821
